FAERS Safety Report 8869220 (Version 1)
Quarter: 2012Q4

REPORT INFORMATION
  Report Type: Spontaneous
  Country: US (occurrence: None)
  Receive Date: 20121025
  Receipt Date: 20121025
  Transmission Date: 20130627
  Serious: Yes (Life-Threatening, Hospitalization, Disabling)
  Sender: FDA-Public Use
  Company Number: None

PATIENT
  Age: 48 Year
  Sex: Male
  Weight: 87.9 kg

DRUGS (1)
  1. PAZOPANIB [Suspect]
     Indication: SYNOVIAL SARCOMA
     Dosage: 800mg daily oral
     Route: 048
     Dates: start: 20120925, end: 20121016

REACTIONS (5)
  - Monoplegia [None]
  - Muscular weakness [None]
  - VIIth nerve paralysis [None]
  - Convulsion [None]
  - Cerebral haemorrhage [None]
